FAERS Safety Report 8943451 (Version 2)
Quarter: 2013Q2

REPORT INFORMATION
  Report Type: Report from Study
  Country: MX (occurrence: MX)
  Receive Date: 20121204
  Receipt Date: 20130515
  Transmission Date: 20140414
  Serious: Yes (Death)
  Sender: FDA-Public Use
  Company Number: PHHY2012MX110724

PATIENT
  Age: 70 Year
  Sex: Male

DRUGS (1)
  1. ZOMETA [Suspect]
     Indication: BONE CANCER
     Dosage: 4 MG, PER 5ML ONCE IN MONTH
     Route: 042
     Dates: start: 201209

REACTIONS (4)
  - Infarction [Fatal]
  - Brain death [Fatal]
  - Bone cancer [Fatal]
  - Malignant neoplasm progression [Fatal]
